FAERS Safety Report 9240207 (Version 2)
Quarter: 2013Q3

REPORT INFORMATION
  Report Type: Spontaneous
  Country: JP (occurrence: None)
  Receive Date: 20130417
  Receipt Date: 20130723
  Transmission Date: 20140515
  Serious: Yes (Other)
  Sender: FDA-Public Use
  Company Number: ADR-2013-00652

PATIENT
  Sex: Male

DRUGS (1)
  1. GABALON [Suspect]
     Dosage: SEE B5

REACTIONS (6)
  - Activities of daily living impaired [None]
  - Muscular weakness [None]
  - Lower motor neurone lesion [None]
  - Cell death [None]
  - Disease progression [None]
  - Pre-existing disease [None]
